FAERS Safety Report 7451589-X (Version None)
Quarter: 2011Q2

REPORT INFORMATION
  Report Type: 
  Country: None (occurrence: None)
  Receive Date: 20110502
  Receipt Date: 20101101
  Transmission Date: 20111010
  Serious: No
  Sender: FDA-Public Use
  Company Number: US-ASTRAZENECA-2009UW05315

PATIENT
  Age: 71 Year
  Sex: Female
  Weight: 82.1 kg

DRUGS (6)
  1. PRILOSEC OTC [Suspect]
     Route: 048
     Dates: start: 20100901
  2. PRILOSEC [Suspect]
     Indication: GASTROOESOPHAGEAL REFLUX DISEASE
     Route: 048
     Dates: end: 20060101
  3. ZESTRIL [Concomitant]
     Route: 048
  4. NEXIUM [Suspect]
     Indication: GASTROOESOPHAGEAL REFLUX DISEASE
     Route: 048
     Dates: start: 20060101, end: 20100901
  5. HYDROCHLOROTHIAZIDE [Concomitant]
  6. TOPROL-XL [Concomitant]
     Route: 048

REACTIONS (9)
  - DRUG DOSE OMISSION [None]
  - FLUSHING [None]
  - DRUG INEFFECTIVE [None]
  - COUGH [None]
  - WRONG DRUG ADMINISTERED [None]
  - BLOOD PRESSURE INCREASED [None]
  - ANXIETY [None]
  - BLOOD PRESSURE SYSTOLIC INCREASED [None]
  - HYPERTENSION [None]
